FAERS Safety Report 9405927 (Version 3)
Quarter: 2014Q1

REPORT INFORMATION
  Report Type: Spontaneous
  Country: US (occurrence: US)
  Receive Date: 20130717
  Receipt Date: 20140218
  Transmission Date: 20141002
  Serious: Yes (Death)
  Sender: FDA-Public Use
  Company Number: US-GLAXOSMITHKLINE-A1033760A

PATIENT
  Age: 65 Year
  Sex: Female
  Weight: 87.5 kg

DRUGS (3)
  1. VOTRIENT [Suspect]
     Indication: PRODUCT USED FOR UNKNOWN INDICATION
     Dosage: 200MG UNKNOWN
  2. MORPHINE [Concomitant]
  3. NACL [Concomitant]

REACTIONS (2)
  - Angiosarcoma metastatic [Fatal]
  - Palliative care [Unknown]
